FAERS Safety Report 6131436-9 (Version None)
Quarter: 2009Q1

REPORT INFORMATION
  Report Type: 
  Country: None (occurrence: None)
  Receive Date: 20090325
  Receipt Date: 20080626
  Transmission Date: 20090719
  Serious: No
  Sender: FDA-Public Use
  Company Number: US-BRISTOL-MYERS SQUIBB COMPANY-14242515

PATIENT

DRUGS (3)
  1. ERBITUX [Suspect]
     Indication: COLORECTAL CANCER
  2. IRINOTECAN HCL [Concomitant]
  3. DIPHENHYDRAMINE [Concomitant]
     Indication: PREMEDICATION

REACTIONS (6)
  - BLOOD PRESSURE INCREASED [None]
  - CHILLS [None]
  - HEADACHE [None]
  - NAUSEA [None]
  - PYREXIA [None]
  - VOMITING [None]
